FAERS Safety Report 17679193 (Version 1)
Quarter: 2020Q2

REPORT INFORMATION
  Report Type: Spontaneous
  Country: US (occurrence: US)
  Receive Date: 20200417
  Receipt Date: 20200417
  Transmission Date: 20200714
  Serious: Yes (Other)
  Sender: FDA-Public Use
  Company Number: US-BAYER-2020-061926

PATIENT
  Age: 39 Year
  Sex: Female

DRUGS (1)
  1. MIRENA [Suspect]
     Active Substance: LEVONORGESTREL
     Indication: GYNAECOLOGICAL DISORDER PROPHYLAXIS
     Dosage: 20 ?G PER DAY CONTINUOUSLY
     Route: 015
     Dates: start: 201908

REACTIONS (8)
  - Vaginal haemorrhage [None]
  - Dysuria [Recovering/Resolving]
  - Amenorrhoea [None]
  - Off label use of device [None]
  - Dysmenorrhoea [Recovered/Resolved]
  - Genital haemorrhage [Not Recovered/Not Resolved]
  - Device use issue [None]
  - Endometriosis [Not Recovered/Not Resolved]

NARRATIVE: CASE EVENT DATE: 2020
